FAERS Safety Report 10737658 (Version 5)
Quarter: 2016Q1

REPORT INFORMATION
  Report Type: Report from Study
  Country: BR (occurrence: BR)
  Receive Date: 20150126
  Receipt Date: 20160212
  Transmission Date: 20160525
  Serious: Yes (Hospitalization, Disabling, Other)
  Sender: FDA-Public Use
  Company Number: BR-ABBVIE-15K-020-1335714-00

PATIENT
  Age: 68 Year
  Sex: Female
  Weight: 70 kg

DRUGS (25)
  1. PREDNISONE. [Concomitant]
     Active Substance: PREDNISONE
     Indication: ANTIINFLAMMATORY THERAPY
  2. PANTOPRAZOLE [Concomitant]
     Active Substance: PANTOPRAZOLE SODIUM
     Indication: GASTRIC DISORDER
     Route: 048
     Dates: start: 2002
  3. TECNOMET [Concomitant]
     Active Substance: METHOTREXATE
     Indication: FALL
  4. ALENDRONATE [Concomitant]
     Active Substance: ALENDRONATE SODIUM
     Indication: BLOOD CALCIUM
     Route: 048
     Dates: start: 2015
  5. OSSOTRAT-D [Concomitant]
     Indication: PRODUCT USED FOR UNKNOWN INDICATION
     Route: 048
     Dates: start: 2011
  6. MELOXICAM. [Concomitant]
     Active Substance: MELOXICAM
     Indication: FALL
  7. PREDNISONE. [Concomitant]
     Active Substance: PREDNISONE
     Indication: FALL
  8. TECNOMET [Concomitant]
     Active Substance: METHOTREXATE
     Indication: ARTHRITIS
  9. FLUOXETINE [Concomitant]
     Active Substance: FLUOXETINE HYDROCHLORIDE
     Indication: ANTIDEPRESSANT THERAPY
     Route: 048
     Dates: start: 2004
  10. MELOXICAM. [Concomitant]
     Active Substance: MELOXICAM
     Indication: RHEUMATOID ARTHRITIS
     Route: 048
     Dates: start: 2004
  11. CALCIUM [Concomitant]
     Active Substance: CALCIUM
     Indication: FALL
  12. OMEPRAZOLE. [Concomitant]
     Active Substance: OMEPRAZOLE
     Indication: GASTRIC DISORDER
     Route: 048
     Dates: start: 2005
  13. GLIFAGE [Concomitant]
     Active Substance: METFORMIN HYDROCHLORIDE
     Indication: DIABETES MELLITUS
     Route: 048
     Dates: start: 2009
  14. BLACKBERRY EXTRACT [Concomitant]
     Indication: HORMONE REPLACEMENT THERAPY
     Route: 048
     Dates: end: 201505
  15. HUMIRA [Suspect]
     Active Substance: ADALIMUMAB
     Indication: RHEUMATOID ARTHRITIS
     Route: 058
     Dates: start: 20080105
  16. EUTHYROX [Concomitant]
     Active Substance: LEVOTHYROXINE SODIUM
     Indication: THYROID DISORDER
     Route: 048
     Dates: start: 2011
  17. VYTORIN [Concomitant]
     Active Substance: EZETIMIBE\SIMVASTATIN
     Indication: BLOOD CHOLESTEROL ABNORMAL
     Route: 048
     Dates: start: 2006
  18. MELOXICAM. [Concomitant]
     Active Substance: MELOXICAM
     Indication: ANTIINFLAMMATORY THERAPY
  19. CALCIUM [Concomitant]
     Active Substance: CALCIUM
     Indication: ARTHRITIS
  20. ATENOLOL. [Concomitant]
     Active Substance: ATENOLOL
     Indication: HYPERTENSION
     Route: 048
     Dates: start: 2008
  21. FLUOXETIN [Concomitant]
     Active Substance: FLUOXETINE HYDROCHLORIDE
     Indication: DEPRESSION
     Route: 048
     Dates: start: 2004
  22. OMEGA 3 [Concomitant]
     Active Substance: OMEGA-3 FATTY ACIDS
     Indication: PRODUCT USED FOR UNKNOWN INDICATION
     Route: 048
  23. ULTRACET [Concomitant]
     Active Substance: ACETAMINOPHEN\TRAMADOL HYDROCHLORIDE
     Indication: PAIN
     Route: 048
     Dates: start: 2009
  24. PREDNISONE. [Concomitant]
     Active Substance: PREDNISONE
     Indication: RHEUMATOID ARTHRITIS
     Route: 048
     Dates: start: 2004
  25. ULTRACET [Concomitant]
     Active Substance: ACETAMINOPHEN\TRAMADOL HYDROCHLORIDE
     Indication: PAIN
     Route: 048
     Dates: start: 2004

REACTIONS (19)
  - X-ray abnormal [Unknown]
  - Paraesthesia [Unknown]
  - Blood test abnormal [Unknown]
  - Diarrhoea [Unknown]
  - Pain in extremity [Unknown]
  - Spinal fracture [Recovering/Resolving]
  - Malaise [Recovered/Resolved]
  - Hormone level abnormal [Unknown]
  - Nuclear magnetic resonance imaging abnormal [Unknown]
  - Gait disturbance [Unknown]
  - Fall [Unknown]
  - Accident [Recovering/Resolving]
  - Hypertension [Not Recovered/Not Resolved]
  - Balance disorder [Unknown]
  - Weight increased [Unknown]
  - Gastric disorder [Unknown]
  - Intervertebral disc protrusion [Unknown]
  - Oral disorder [Unknown]
  - Nerve compression [Unknown]

NARRATIVE: CASE EVENT DATE: 2008
